FAERS Safety Report 14207227 (Version 1)
Quarter: 2017Q4

REPORT INFORMATION
  Report Type: Spontaneous
  Country: US (occurrence: US)
  Receive Date: 20171121
  Receipt Date: 20171121
  Transmission Date: 20180321
  Serious: No
  Sender: FDA-Public Use
  Company Number: US-JNJFOC-20171004267

PATIENT
  Age: 52 Year
  Sex: Female

DRUGS (2)
  1. DOXIL [Suspect]
     Active Substance: DOXORUBICIN HYDROCHLORIDE
     Indication: ENDOMETRIAL CANCER
     Route: 042
     Dates: start: 201706
  2. PROPRANOLOL [Concomitant]
     Active Substance: PROPRANOLOL HYDROCHLORIDE
     Route: 065

REACTIONS (7)
  - Weight increased [Unknown]
  - Blood urine present [Not Recovered/Not Resolved]
  - Rash [Not Recovered/Not Resolved]
  - Dizziness [Recovered/Resolved]
  - Urinary tract infection [Unknown]
  - Chromaturia [Unknown]
  - Dyspepsia [Unknown]

NARRATIVE: CASE EVENT DATE: 201706
